FAERS Safety Report 24234528 (Version 2)
Quarter: 2024Q3

REPORT INFORMATION
  Report Type: Spontaneous
  Country: CN (occurrence: CN)
  Receive Date: 20240821
  Receipt Date: 20240906
  Transmission Date: 20241017
  Serious: Yes (Other)
  Sender: MYLAN
  Company Number: CN-MYLANLABS-2024M1076663

PATIENT
  Age: 38 Year
  Sex: Male

DRUGS (1)
  1. CARDURA XL [Suspect]
     Active Substance: DOXAZOSIN MESYLATE
     Indication: Product used for unknown indication
     Dosage: UNK
     Route: 065

REACTIONS (6)
  - Angina pectoris [Not Recovered/Not Resolved]
  - Gastrointestinal disorder [Not Recovered/Not Resolved]
  - Abdominal pain upper [Recovering/Resolving]
  - Back pain [Recovering/Resolving]
  - Dry mouth [Recovering/Resolving]
  - Rash [Unknown]
